FAERS Safety Report 19180417 (Version 1)
Quarter: 2021Q2

REPORT INFORMATION
  Report Type: Spontaneous
  Country: US (occurrence: US)
  Receive Date: 20210426
  Receipt Date: 20210426
  Transmission Date: 20210717
  Serious: Yes (Hospitalization)
  Sender: FDA-Public Use
  Company Number: US-GW PHARMA-202104USGW01961

PATIENT

DRUGS (2)
  1. EPIDIOLEX [Suspect]
     Active Substance: CANNABIDIOL
     Indication: PRODUCT USED FOR UNKNOWN INDICATION
     Dosage: 23 MG/KG/DAY 1200 MILLIGRAM, BID
     Route: 048
     Dates: start: 20190529, end: 202104
  2. EPIDIOLEX [Suspect]
     Active Substance: CANNABIDIOL
     Dosage: 26.83 MG/KG/DAY 1400 MILLIGRAM, BID
     Route: 048
     Dates: start: 20210419

REACTIONS (2)
  - Seizure [Recovered/Resolved]
  - Prescribed overdose [Unknown]
